FAERS Safety Report 10832238 (Version 1)
Quarter: 2015Q1

REPORT INFORMATION
  Report Type: Spontaneous
  Country: FR (occurrence: FR)
  Receive Date: 20150219
  Receipt Date: 20150219
  Transmission Date: 20150721
  Serious: Yes (Hospitalization, Other)
  Sender: FDA-Public Use
  Company Number: FR-ASTRAZENECA-2015SE14392

PATIENT
  Age: 64 Year
  Sex: Female

DRUGS (1)
  1. XEROQUEL [Suspect]
     Active Substance: QUETIAPINE FUMARATE
     Route: 048
     Dates: start: 2013, end: 20141001

REACTIONS (6)
  - Pneumonia aspiration [Unknown]
  - Coma [Recovered/Resolved]
  - Hyponatraemia [Recovered/Resolved]
  - Therapy cessation [Unknown]
  - Thrombophlebitis septic [Unknown]
  - Seizure [Recovered/Resolved]

NARRATIVE: CASE EVENT DATE: 20140929
